FAERS Safety Report 12068718 (Version 1)
Quarter: 2016Q1

REPORT INFORMATION
  Report Type: Spontaneous
  Country: US (occurrence: US)
  Receive Date: 20160211
  Receipt Date: 20160211
  Transmission Date: 20160526
  Serious: No
  Sender: FDA-Public Use
  Company Number: US-BAYER-2016-025844

PATIENT
  Age: 89 Year
  Sex: Female
  Weight: 45.35 kg

DRUGS (8)
  1. ZETIA [Concomitant]
     Active Substance: EZETIMIBE
  2. METAMUCIL [Concomitant]
     Active Substance: PLANTAGO SEED
  3. MIRALAX [Suspect]
     Active Substance: POLYETHYLENE GLYCOL 3350
     Indication: CONSTIPATION
     Dosage: 1/2 TO 3/4
     Route: 048
  4. COLACE [Concomitant]
     Active Substance: DOCUSATE SODIUM
  5. METOPROLOL. [Concomitant]
     Active Substance: METOPROLOL
  6. AMLODIPINE [Concomitant]
     Active Substance: AMLODIPINE BESYLATE
  7. XANAX [Concomitant]
     Active Substance: ALPRAZOLAM
  8. BENEFIBER [Concomitant]
     Active Substance: STARCH, WHEAT

REACTIONS (1)
  - Product use issue [None]
